FAERS Safety Report 10276944 (Version 1)
Quarter: 2014Q3

REPORT INFORMATION
  Report Type: Spontaneous
  Country: US (occurrence: US)
  Receive Date: 20140703
  Receipt Date: 20140703
  Transmission Date: 20150326
  Serious: Yes (Hospitalization, Other)
  Sender: FDA-Public Use
  Company Number: US-009507513-1407USA000415

PATIENT
  Sex: Female

DRUGS (1)
  1. NUVARING [Suspect]
     Active Substance: ETHINYL ESTRADIOL\ETONOGESTREL
     Dosage: 0.12-0.015MG/24HR, IN 3 WEEKS AND REMOVE 1 WEEK
     Route: 067
     Dates: start: 20110927, end: 20120119

REACTIONS (7)
  - Thyroidectomy [Unknown]
  - Maternal exposure before pregnancy [Unknown]
  - Pain in extremity [Unknown]
  - Pulmonary embolism [Unknown]
  - Abortion [Unknown]
  - Headache [Not Recovered/Not Resolved]
  - Hypothyroidism [Unknown]

NARRATIVE: CASE EVENT DATE: 20120121
